FAERS Safety Report 4723464-2 (Version None)
Quarter: 2005Q3

REPORT INFORMATION
  Report Type: 
  Country: None (occurrence: None)
  Receive Date: 20050725
  Receipt Date: 20040223
  Transmission Date: 20060218
  Serious: Yes (Hospitalization, Other)
  Sender: FDA-Public Use
  Company Number: US-GLAXOSMITHKLINE-B0324595A

PATIENT
  Age: 57 Year
  Sex: Male

DRUGS (4)
  1. PAROXETINE HCL [Suspect]
     Dosage: 3600MG CUMULATIVE DOSE
     Route: 048
  2. ETHANOL [Suspect]
     Route: 048
  3. DIVALPROEX SODIUM [Concomitant]
     Route: 065
  4. FELODIPINE [Concomitant]
     Indication: HYPERTENSION
     Route: 065

REACTIONS (13)
  - AGITATION [None]
  - CHILLS [None]
  - DRY MOUTH [None]
  - HEART RATE INCREASED [None]
  - HYPERHIDROSIS [None]
  - HYPERREFLEXIA [None]
  - HYPERTENSION [None]
  - HYPERTONIA [None]
  - INTENTIONAL MISUSE [None]
  - NAUSEA [None]
  - PYREXIA [None]
  - SEROTONIN SYNDROME [None]
  - TACHYCARDIA [None]
